FAERS Safety Report 26107889 (Version 1)
Quarter: 2025Q4

REPORT INFORMATION
  Report Type: Spontaneous
  Country: US (occurrence: None)
  Receive Date: 20251201
  Receipt Date: 20251201
  Transmission Date: 20260117
  Serious: Yes (Hospitalization)
  Sender: FDA-CTU
  Company Number: None

PATIENT
  Sex: Male

DRUGS (5)
  1. SCEMBLIX [Suspect]
     Active Substance: ASCIMINIB HYDROCHLORIDE
     Indication: Chronic myeloid leukaemia
     Dosage: 40 MG TWICE A DAY ORAL ?
     Route: 048
  2. SCEMBLIX [Suspect]
     Active Substance: ASCIMINIB HYDROCHLORIDE
     Indication: Chronic myeloid leukaemia
  3. POSACONAZOLE [Suspect]
     Active Substance: POSACONAZOLE
     Indication: Chronic myeloid leukaemia
     Dosage: 300 MG
  4. POSACONAZOLE [Suspect]
     Active Substance: POSACONAZOLE
     Indication: Chronic myeloid leukaemia
  5. POSACONAZOLE [Concomitant]
     Active Substance: POSACONAZOLE

REACTIONS (1)
  - Gastric ulcer [None]
